FAERS Safety Report 7531364-8 (Version None)
Quarter: 2011Q2

REPORT INFORMATION
  Report Type: 
  Country: None (occurrence: None)
  Receive Date: 20110608
  Receipt Date: 20110525
  Transmission Date: 20111010
  Serious: Yes (Other)
  Sender: FDA-Public Use
  Company Number: PHHY2010NL61062

PATIENT
  Sex: Male

DRUGS (15)
  1. AMLODIPINE [Concomitant]
  2. ZOMETA [Suspect]
     Dosage: 4 MG/5 ML
     Dates: start: 20110429
  3. CALCICHEW D3 [Concomitant]
  4. ZOMETA [Suspect]
     Dosage: 4 MG/5 ML
     Dates: start: 20100817
  5. PREDNISONE [Concomitant]
  6. LACTULOSE [Concomitant]
  7. DICLOFENAC SODIUM [Concomitant]
  8. ZOMETA [Suspect]
     Dosage: 4 MG/5 ML
     Dates: start: 20101013
  9. ZOLADEX [Concomitant]
  10. ZOMETA [Suspect]
     Indication: PROSTATE CANCER METASTATIC
     Dosage: 4 MG/5 ML
     Dates: start: 20090220
  11. ZOMETA [Suspect]
     Dosage: 4 MG/5 ML
     Dates: start: 20110525
  12. TAMSULOSIN HCL [Concomitant]
  13. IRBESARTAN AND HYDROCHLOROTHIAZIDE [Concomitant]
  14. ZOMETA [Suspect]
     Dosage: 4 MG/5 ML
     Dates: start: 20100915
  15. ZOMETA [Suspect]
     Dosage: 4 MG/5 ML
     Dates: start: 20110429

REACTIONS (3)
  - PAIN [None]
  - MUSCULOSKELETAL PAIN [None]
  - GROIN PAIN [None]
